FAERS Safety Report 9639025 (Version 1)
Quarter: 2013Q4

REPORT INFORMATION
  Report Type: Spontaneous
  Country: JP (occurrence: None)
  Receive Date: 20131018
  Receipt Date: 20131018
  Transmission Date: 20140711
  Serious: Yes (Other)
  Sender: FDA-Public Use
  Company Number: AXC-2013-000550

PATIENT
  Sex: Male

DRUGS (1)
  1. URSODEOXYCHOLIC ACID [Suspect]
     Indication: CHOLELITHIASIS
     Route: 048

REACTIONS (3)
  - Dyspnoea [None]
  - Cough [None]
  - Chest discomfort [None]
